FAERS Safety Report 8947568 (Version 7)
Quarter: 2013Q3

REPORT INFORMATION
  Report Type: Spontaneous
  Country: CA (occurrence: CA)
  Receive Date: 20121204
  Receipt Date: 20130909
  Transmission Date: 20140515
  Serious: Yes (Other)
  Sender: FDA-Public Use
  Company Number: CA-ROCHE-1163332

PATIENT
  Age: 59 Year
  Sex: Male

DRUGS (7)
  1. XOLAIR [Suspect]
     Indication: ASTHMA
     Route: 058
     Dates: start: 20101103
  2. XOLAIR [Suspect]
     Route: 065
     Dates: start: 20130220
  3. XOLAIR [Suspect]
     Route: 065
     Dates: start: 20130320
  4. XOLAIR [Suspect]
     Route: 065
     Dates: start: 20130417
  5. XOLAIR [Suspect]
     Route: 065
     Dates: end: 20130621
  6. XOLAIR [Suspect]
     Route: 065
     Dates: start: 20130710
  7. XOLAIR [Suspect]
     Route: 065
     Dates: start: 20130904

REACTIONS (1)
  - Hypertension [Not Recovered/Not Resolved]
